FAERS Safety Report 5657985-5 (Version None)
Quarter: 2008Q1

REPORT INFORMATION
  Report Type: 
  Country: None (occurrence: None)
  Receive Date: 20080310
  Receipt Date: 20080228
  Transmission Date: 20080703
  Serious: Yes (Other)
  Sender: FDA-Public Use
  Company Number: PHHY2008JP02434

PATIENT
  Age: 37 Year
  Sex: Male

DRUGS (1)
  1. SANDIMMUNE [Suspect]
     Indication: PSORIASIS
     Route: 048

REACTIONS (3)
  - ARTHROPATHY [None]
  - JOINT DESTRUCTION [None]
  - LUNG DISORDER [None]
